FAERS Safety Report 6768132-0 (Version None)
Quarter: 2010Q2

REPORT INFORMATION
  Report Type: 
  Country: None (occurrence: None)
  Receive Date: 20100614
  Receipt Date: 20100525
  Transmission Date: 20101027
  Serious: Yes (Death)
  Sender: FDA-Public Use
  Company Number: ES-SANOFI-AVENTIS-2010SA033350

PATIENT
  Age: 56 Year
  Sex: Male
  Weight: 58.8 kg

DRUGS (11)
  1. BLINDED THERAPY [Suspect]
     Indication: NON-SMALL CELL LUNG CANCER METASTATIC
     Route: 042
     Dates: start: 20100121, end: 20100121
  2. BLINDED THERAPY [Suspect]
     Route: 042
     Dates: start: 20100421, end: 20100421
  3. DOCETAXEL [Suspect]
     Indication: NON-SMALL CELL LUNG CANCER METASTATIC
     Route: 042
     Dates: start: 20100121, end: 20100121
  4. DOCETAXEL [Suspect]
     Route: 042
     Dates: start: 20100421, end: 20100421
  5. CORTICOSTEROIDS [Concomitant]
  6. ALL OTHER THERAPEUTIC PRODUCTS [Concomitant]
     Dates: start: 20100211
  7. OMEPRAZOLE [Concomitant]
     Dates: start: 20100211
  8. MEGACE [Concomitant]
     Dates: start: 20100211, end: 20100421
  9. ALL OTHER THERAPEUTIC PRODUCTS [Concomitant]
     Dates: start: 20100211
  10. BOREA [Concomitant]
     Dates: start: 20100325
  11. ATROPINE SULFATE AND FERRIC SODIUM ALLOXAN AND FERROSO FERRIC SODIUM D [Concomitant]
     Dates: start: 20100421

REACTIONS (1)
  - HAEMOPTYSIS [None]
